FAERS Safety Report 8439551-1 (Version None)
Quarter: 2012Q2

REPORT INFORMATION
  Report Type: 
  Country: None (occurrence: None)
  Receive Date: 20120323
  Receipt Date: 20110525
  Transmission Date: 20120825
  Serious: Yes (Hospitalization)
  Sender: FDA-Public Use
  Company Number: 163-21880-11053574

PATIENT
  Age: 64 Year
  Sex: Male

DRUGS (10)
  1. AMBIEN [Concomitant]
  2. MULTIVITAMINS (MULTIIVITAMINS) [Concomitant]
  3. DEXAMETHASONE (DEXAMETHASON) [Concomitant]
  4. LANTUS [Concomitant]
  5. ATENOLOL [Concomitant]
  6. REVLIMID [Suspect]
     Indication: MULTIPLE MYELOMA
     Dosage: 25 MG, 1 IN 1 D, PO
     Route: 048
     Dates: start: 20091001
  7. NITROSTAT [Concomitant]
  8. COUMADIN [Concomitant]
  9. LIPITOR [Concomitant]
  10. ALLERGRA (FEXOFENDINE HYDROCHLORIDE) [Concomitant]

REACTIONS (1)
  - PNEUMONIA [None]
